FAERS Safety Report 12767259 (Version 1)
Quarter: 2016Q3

REPORT INFORMATION
  Report Type: Spontaneous
  Country: US (occurrence: US)
  Receive Date: 20160915
  Receipt Date: 20160915
  Transmission Date: 20161109
  Serious: No
  Sender: FDA-Public Use
  Company Number: None

PATIENT
  Age: 64 Year
  Sex: Male

DRUGS (1)
  1. HUMIRA [Suspect]
     Active Substance: ADALIMUMAB
     Indication: PSORIATIC ARTHROPATHY
     Route: 058

REACTIONS (7)
  - Inflammation [None]
  - Musculoskeletal pain [None]
  - Arthralgia [None]
  - Pain [None]
  - Fatigue [None]
  - Treatment noncompliance [None]
  - Peripheral swelling [None]

NARRATIVE: CASE EVENT DATE: 20160707
